FAERS Safety Report 11755345 (Version 1)
Quarter: 2015Q4

REPORT INFORMATION
  Report Type: Report from Study
  Country: VE (occurrence: VE)
  Receive Date: 20151119
  Receipt Date: 20151119
  Transmission Date: 20160304
  Serious: Yes (Hospitalization)
  Sender: FDA-Public Use
  Company Number: PHHY2015VE149717

PATIENT
  Sex: Female

DRUGS (4)
  1. AIRON [Concomitant]
     Indication: ASTHMATIC CRISIS
     Dosage: UNK UNK, QD
     Route: 065
     Dates: start: 2014
  2. FORADIL [Suspect]
     Active Substance: FORMOTEROL FUMARATE
     Indication: ASTHMATIC CRISIS
     Dosage: UNK UNK, QD
     Route: 055
  3. XOLAIR [Suspect]
     Active Substance: OMALIZUMAB
     Indication: ASTHMATIC CRISIS
     Dosage: 600 MG, QMO
     Route: 058
  4. MIFLONIDE [Suspect]
     Active Substance: BUDESONIDE
     Indication: ASTHMATIC CRISIS
     Dosage: UNK UNK, QD
     Route: 055

REACTIONS (3)
  - Asthmatic crisis [Unknown]
  - Malaise [Unknown]
  - Pneumonia [Unknown]
